FAERS Safety Report 6393396-5 (Version None)
Quarter: 2009Q4

REPORT INFORMATION
  Report Type: 
  Country: None (occurrence: None)
  Receive Date: 20091008
  Receipt Date: 20091001
  Transmission Date: 20100525
  Serious: Yes (Hospitalization)
  Sender: FDA-Public Use
  Company Number: AT-JNJFOC-20091000396

PATIENT
  Age: 42 Year
  Sex: Female
  Weight: 60 kg

DRUGS (8)
  1. RISPERDAL [Suspect]
     Indication: DRUG USE FOR UNKNOWN INDICATION
     Route: 048
     Dates: start: 20090414, end: 20090521
  2. TEMESTA [Suspect]
     Route: 065
  3. TEMESTA [Suspect]
     Indication: DRUG USE FOR UNKNOWN INDICATION
     Route: 065
  4. SEROQUEL [Suspect]
     Indication: DRUG USE FOR UNKNOWN INDICATION
     Route: 065
     Dates: start: 20090505, end: 20090528
  5. NOZINAN [Suspect]
     Indication: DRUG USE FOR UNKNOWN INDICATION
     Route: 065
     Dates: start: 20090516, end: 20090516
  6. CITALOPRAM HYDROBROMIDE [Concomitant]
     Route: 065
  7. VENLAFAXINE HCL [Concomitant]
     Route: 065
  8. LAMICTAL [Concomitant]
     Route: 065

REACTIONS (1)
  - ILEUS PARALYTIC [None]
